FAERS Safety Report 4453069-2 (Version None)
Quarter: 2004Q3

REPORT INFORMATION
  Report Type: 
  Country: None (occurrence: None)
  Receive Date: 20040813
  Receipt Date: 20040505
  Transmission Date: 20050211
  Serious: No
  Sender: FDA-Public Use
  Company Number: S04-USA-03285-01

PATIENT
  Age: 86 Year
  Sex: Male

DRUGS (16)
  1. NAMENDA [Suspect]
     Indication: DEMENTIA ALZHEIMER'S TYPE
     Dosage: 15 MG QD PO
     Route: 048
     Dates: start: 20040505
  2. NAMENDA [Suspect]
     Indication: DEMENTIA ALZHEIMER'S TYPE
     Dosage: 5 MG QD PO
     Route: 048
     Dates: start: 20040421, end: 20040427
  3. NAMENDA [Suspect]
     Indication: DEMENTIA ALZHEIMER'S TYPE
     Dosage: 10 MG QD PO
     Route: 048
     Dates: start: 20040428, end: 20040504
  4. LOPRESSOR [Concomitant]
  5. LASIX [Concomitant]
  6. POTASSIUM [Concomitant]
  7. ZOCOR [Concomitant]
  8. ZOMETA [Concomitant]
  9. CASODEX [Concomitant]
  10. LUPRON [Concomitant]
  11. ARICEPT [Concomitant]
  12. COUMADIN [Concomitant]
  13. DIGOXIN [Concomitant]
  14. RITALIN [Concomitant]
  15. GLIPIZIDE [Concomitant]
  16. GLUCOPHAGE [Concomitant]

REACTIONS (2)
  - BLOOD PRESSURE DIASTOLIC DECREASED [None]
  - FATIGUE [None]
